FAERS Safety Report 4485837-5 (Version None)
Quarter: 2004Q3

REPORT INFORMATION
  Report Type: 
  Country: None (occurrence: None)
  Receive Date: 20040921
  Receipt Date: 20031002
  Transmission Date: 20050211
  Serious: Yes (Death)
  Sender: FDA-Public Use
  Company Number: 163-20785-03100155

PATIENT
  Age: 70 Year
  Sex: Male

DRUGS (2)
  1. THALOMID [Suspect]
     Indication: MULTIPLE MYELOMA
     Dosage: 100 MG, QD, ORAL
     Route: 048
     Dates: start: 20020528, end: 20030508
  2. PS - 341(INJECTION) [Suspect]
     Indication: MULTIPLE MYELOMA
     Dosage: 1 MG/M2, (DAYS 1, 4, 8, 11) 21 DAY CYCLE, INTRAVENOUS
     Route: 042
     Dates: start: 20020507, end: 20030508

REACTIONS (2)
  - DEATH [None]
  - DISEASE PROGRESSION [None]
